FAERS Safety Report 14157738 (Version 1)
Quarter: 2017Q4

REPORT INFORMATION
  Report Type: Spontaneous
  Country: US (occurrence: US)
  Receive Date: 20171103
  Receipt Date: 20171103
  Transmission Date: 20180321
  Serious: Yes (Other)
  Sender: FDA-Public Use
  Company Number: US-SAOL THERAPEUTICS-2017SAO01685

PATIENT
  Age: 55 Year
  Sex: Male
  Weight: 70.3 kg

DRUGS (9)
  1. BACLOFEN. [Suspect]
     Active Substance: BACLOFEN
     Dosage: 308.7 ?G, \DAY
     Route: 037
  2. BACLOFEN. [Suspect]
     Active Substance: BACLOFEN
     Dosage: 308.74 ?G, \DAY
     Route: 037
     Dates: start: 20171004, end: 20171026
  3. BACLOFEN. [Suspect]
     Active Substance: BACLOFEN
     Dosage: 308.54 ?G, \DAY
     Route: 037
     Dates: start: 20171026
  4. DILAUDID [Suspect]
     Active Substance: HYDROMORPHONE HYDROCHLORIDE
     Dosage: 18.51 MG, \DAY
     Route: 037
     Dates: start: 20171026
  5. BUPIVACAINE. [Suspect]
     Active Substance: BUPIVACAINE
     Dosage: 12.349 MG, \DAY
     Route: 037
     Dates: start: 20171004, end: 20171026
  6. BUPIVACAINE. [Suspect]
     Active Substance: BUPIVACAINE
     Dosage: 12.34 MG, \DAY
     Route: 037
     Dates: start: 20171026
  7. DILAUDID [Suspect]
     Active Substance: HYDROMORPHONE HYDROCHLORIDE
     Dosage: 18.524 MG, \DAY
     Route: 037
     Dates: start: 20171004, end: 20171026
  8. DILAUDID [Suspect]
     Active Substance: HYDROMORPHONE HYDROCHLORIDE
     Dosage: 18.5 MG, \DAY
     Route: 037
  9. BUPIVACAINE. [Suspect]
     Active Substance: BUPIVACAINE
     Dosage: 12.3 MG, \DAY
     Route: 037

REACTIONS (5)
  - Tremor [Recovered/Resolved]
  - Hyperhidrosis [Recovered/Resolved]
  - Irritability [Recovered/Resolved]
  - Body temperature fluctuation [Recovered/Resolved]
  - Pain [Recovered/Resolved]

NARRATIVE: CASE EVENT DATE: 20171023
